FAERS Safety Report 10163489 (Version 1)
Quarter: 2014Q2

REPORT INFORMATION
  Report Type: Spontaneous
  Country: US (occurrence: US)
  Receive Date: 20140509
  Receipt Date: 20140509
  Transmission Date: 20141212
  Serious: Yes (Other)
  Sender: FDA-Public Use
  Company Number: US-ELI_LILLY_AND_COMPANY-US201405000578

PATIENT
  Age: 51 Year
  Sex: Male

DRUGS (2)
  1. HUMALOG LISPRO [Suspect]
     Indication: DIABETES MELLITUS
     Dosage: UNK
     Route: 065
     Dates: start: 201104
  2. LANTUS [Concomitant]
     Dosage: UNK, EACH EVENING

REACTIONS (3)
  - T-cell lymphoma [Unknown]
  - Skin cancer [Unknown]
  - Malaise [Unknown]
